FAERS Safety Report 7512166-5 (Version None)
Quarter: 2011Q2

REPORT INFORMATION
  Report Type: 
  Country: None (occurrence: None)
  Receive Date: 20110531
  Receipt Date: 20110510
  Transmission Date: 20111010
  Serious: No
  Sender: FDA-Public Use
  Company Number: US-B.I. PHARMACEUTICALS,INC./RIDGEFIELD-2011-BP-09107BP

PATIENT
  Sex: Female

DRUGS (3)
  1. PRADAXA [Suspect]
  2. LEVOTHYROXINE SODIUM [Concomitant]
     Dosage: 175 MCG
  3. PROPAFENONE HCL [Concomitant]
     Dosage: 150 MG

REACTIONS (6)
  - DYSPNOEA [None]
  - NAUSEA [None]
  - ABDOMINAL PAIN UPPER [None]
  - ABDOMINAL DISCOMFORT [None]
  - WEIGHT DECREASED [None]
  - FATIGUE [None]
